FAERS Safety Report 6050113-6 (Version None)
Quarter: 2009Q1

REPORT INFORMATION
  Report Type: 
  Country: None (occurrence: None)
  Receive Date: 20090121
  Receipt Date: 20090106
  Transmission Date: 20090719
  Serious: Yes (Death)
  Sender: FDA-Public Use
  Company Number: IMP_04197_2009

PATIENT
  Sex: Female

DRUGS (1)
  1. OXYCODONE HCL [Suspect]
     Indication: DRUG USE FOR UNKNOWN INDICATION
     Dosage: DF PARENTERAL
     Route: 051

REACTIONS (3)
  - CARDIAC ARREST [None]
  - POISONING DELIBERATE [None]
  - RESPIRATORY ARREST [None]
